FAERS Safety Report 8556240-3 (Version None)
Quarter: 2012Q3

REPORT INFORMATION
  Report Type: 
  Country: None (occurrence: None)
  Receive Date: 20120801
  Receipt Date: 20120724
  Transmission Date: 20120928
  Serious: Yes (Other)
  Sender: FDA-Public Use
  Company Number: JP-JNJFOC-20120712891

PATIENT
  Age: 78 Year
  Sex: Female
  Weight: 32 kg

DRUGS (7)
  1. RITUXIMAB [Suspect]
     Indication: MANTLE CELL LYMPHOMA
     Route: 065
  2. PREDNISOLONE [Suspect]
     Indication: MANTLE CELL LYMPHOMA
     Route: 065
  3. VINCRISTINE [Suspect]
     Indication: MANTLE CELL LYMPHOMA
     Route: 065
  4. CYCLOPHOSPHAMIDE [Suspect]
     Indication: MANTLE CELL LYMPHOMA
     Route: 065
  5. PIRARUBICIN [Suspect]
     Indication: MANTLE CELL LYMPHOMA
     Route: 065
  6. CLADRIBINE [Suspect]
     Indication: MANTLE CELL LYMPHOMA
     Route: 065
  7. FLUDARABINE PHOSPHATE [Suspect]
     Indication: MANTLE CELL LYMPHOMA
     Route: 065

REACTIONS (2)
  - PULMONARY TUBERCULOSIS [None]
  - MANTLE CELL LYMPHOMA REFRACTORY [None]
